FAERS Safety Report 7797637-9 (Version None)
Quarter: 2011Q4

REPORT INFORMATION
  Report Type: 
  Country: None (occurrence: None)
  Receive Date: 20111005
  Receipt Date: 20110928
  Transmission Date: 20120403
  Serious: Yes (Other)
  Sender: FDA-Public Use
  Company Number: GB-B.I. PHARMACEUTICALS,INC./RIDGEFIELD-2011-UK-00999UK

PATIENT
  Sex: Female

DRUGS (7)
  1. DABIGATRAN [Suspect]
     Indication: KNEE ARTHROPLASTY
     Dosage: 110 MG
  2. ORLISTAT [Concomitant]
     Dosage: 120 MG
  3. MORPHINE SULPHATE IMMEDIATE RELEASE TABLET [Concomitant]
     Dosage: 10 MG
  4. SIMVASTATINA [Concomitant]
     Dosage: 20 MG
  5. OXYCODONE IMMEDIATE RELEASE [Concomitant]
     Dosage: 5 MG
  6. GLUCOSAMINE [Concomitant]
     Dosage: REPORTED AS 'HIGH STRENGH'
  7. OXYCODONE MODIFIED RELEASE [Concomitant]
     Dosage: 10 MG

REACTIONS (1)
  - PULMONARY EMBOLISM [None]
